FAERS Safety Report 19954043 (Version 1)
Quarter: 2021Q4

REPORT INFORMATION
  Report Type: Spontaneous
  Country: US (occurrence: US)
  Receive Date: 20211011
  Receipt Date: 20211011
  Transmission Date: 20220303
  Serious: No
  Sender: FDA-Public Use
  Company Number: None

PATIENT
  Sex: Female

DRUGS (1)
  1. ENBREL [Suspect]
     Active Substance: ETANERCEPT
     Indication: Rheumatoid arthritis
     Route: 058
     Dates: start: 20210908, end: 20211008

REACTIONS (6)
  - Adverse drug reaction [None]
  - Headache [None]
  - Swelling [None]
  - Inflammation [None]
  - Pain [None]
  - Joint swelling [None]
